FAERS Safety Report 6052109-7 (Version None)
Quarter: 2009Q1

REPORT INFORMATION
  Report Type: 
  Country: None (occurrence: None)
  Receive Date: 20090126
  Receipt Date: 20090119
  Transmission Date: 20090719
  Serious: Yes (Hospitalization)
  Sender: FDA-Public Use
  Company Number: US-ROXANE LABORATORIES, INC.-2009-RO-00085RO

PATIENT
  Age: 42 Year
  Sex: Female

DRUGS (6)
  1. PREDNISONE [Suspect]
     Indication: INTERSTITIAL LUNG DISEASE
     Dosage: 60MG
  2. LEVOFLOXACIN [Suspect]
     Indication: PNEUMONIA
  3. MEROPENEM [Concomitant]
     Indication: RHODOCOCCUS INFECTION
     Dosage: 3G
     Route: 042
  4. MEROPENEM [Concomitant]
     Indication: BRAIN ABSCESS
  5. CIPROFLOXACIN [Concomitant]
     Indication: RHODOCOCCUS INFECTION
     Dosage: 1000MG
     Route: 048
  6. CIPROFLOXACIN [Concomitant]
     Indication: BRAIN ABSCESS

REACTIONS (4)
  - BRAIN ABSCESS [None]
  - CONVULSION [None]
  - PNEUMONIA [None]
  - RHODOCOCCUS INFECTION [None]
